FAERS Safety Report 18354581 (Version 1)
Quarter: 2020Q4

REPORT INFORMATION
  Report Type: Spontaneous
  Country: CA (occurrence: CA)
  Receive Date: 20201007
  Receipt Date: 20201007
  Transmission Date: 20210114
  Serious: Yes (Life-Threatening)
  Sender: FDA-Public Use
  Company Number: CA-ACCORD-204278

PATIENT
  Age: 72 Year
  Sex: Female
  Weight: 87 kg

DRUGS (1)
  1. DOCETAXEL. [Suspect]
     Active Substance: DOCETAXEL
     Indication: BREAST CANCER
     Dosage: 20MG/2ML;80MG/8ML;160MG/16ML,1 EVERY 21 DAYS
     Route: 042

REACTIONS (3)
  - Heart rate decreased [Recovered/Resolved]
  - Oxygen saturation decreased [Recovered/Resolved]
  - Unresponsive to stimuli [Recovered/Resolved]
